FAERS Safety Report 5917150-0 (Version None)
Quarter: 2008Q4

REPORT INFORMATION
  Report Type: 
  Country: None (occurrence: None)
  Receive Date: 20081010
  Receipt Date: 20081010
  Transmission Date: 20090506
  Serious: Yes (Hospitalization)
  Sender: FDA-Public Use
  Company Number: None

PATIENT
  Age: 52 Year
  Sex: Male
  Weight: 101.1521 kg

DRUGS (1)
  1. HUMIRA [Suspect]
     Indication: SPINAL OSTEOARTHRITIS
     Dosage: 40 MG Q2W
     Dates: start: 20070101

REACTIONS (1)
  - PERIRECTAL ABSCESS [None]
